FAERS Safety Report 7943978-1 (Version None)
Quarter: 2011Q4

REPORT INFORMATION
  Report Type: 
  Country: None (occurrence: None)
  Receive Date: 20111128
  Receipt Date: 20111012
  Transmission Date: 20120403
  Serious: Yes (Hospitalization, Disabling)
  Sender: FDA-Public Use
  Company Number: JP-ROCHE-715653

PATIENT
  Sex: Female
  Weight: 49 kg

DRUGS (1)
  1. PEGASYS [Suspect]
     Indication: HEPATITIS C
     Dosage: NOTE: 13 TIME ADMINISTERING.
     Route: 058
     Dates: start: 20100316, end: 20100621

REACTIONS (2)
  - VIITH NERVE PARALYSIS [None]
  - GUILLAIN-BARRE SYNDROME [None]
